FAERS Safety Report 7229483-9 (Version None)
Quarter: 2011Q1

REPORT INFORMATION
  Report Type: 
  Country: None (occurrence: None)
  Receive Date: 20110117
  Receipt Date: 20100104
  Transmission Date: 20110831
  Serious: No
  Sender: FDA-Public Use
  Company Number: US-TYCO HEALTHCARE/MALLINCKRODT-T201000005

PATIENT
  Sex: Female
  Weight: 86.168 kg

DRUGS (3)
  1. OPTIRAY 350 [Suspect]
     Indication: COMPUTERISED TOMOGRAM
     Dosage: 100 ML, SINGLE
     Route: 042
     Dates: start: 20091231, end: 20091231
  2. PREDNISONE [Concomitant]
     Dosage: UNK
  3. HORMONES AND RELATED AGENTS [Concomitant]
     Dosage: UNK

REACTIONS (6)
  - INJECTION SITE PAIN [None]
  - INJECTION SITE EXTRAVASATION [None]
  - INJECTION SITE SWELLING [None]
  - DRUG ADMINISTRATION ERROR [None]
  - CLAUSTROPHOBIA [None]
  - TREMOR [None]
